FAERS Safety Report 9132521 (Version 1)
Quarter: 2013Q1

REPORT INFORMATION
  Report Type: Spontaneous
  Country: CN (occurrence: CN)
  Receive Date: 20130301
  Receipt Date: 20130301
  Transmission Date: 20140127
  Serious: Yes (Other)
  Sender: FDA-Public Use
  Company Number: CN-GLAXOSMITHKLINE-B0871304A

PATIENT
  Age: 22 Year
  Sex: Female

DRUGS (1)
  1. FLIXONASE [Suspect]
     Indication: POSTOPERATIVE CARE
     Route: 045
     Dates: start: 201301, end: 201302

REACTIONS (2)
  - Nasal necrosis [Not Recovered/Not Resolved]
  - Nasal septum perforation [Not Recovered/Not Resolved]
